FAERS Safety Report 15612570 (Version 1)
Quarter: 2018Q4

REPORT INFORMATION
  Report Type: Spontaneous
  Country: US (occurrence: US)
  Receive Date: 20181107
  Receipt Date: 20181107
  Transmission Date: 20190205
  Serious: No
  Sender: FDA-Public Use
  Company Number: None

PATIENT
  Sex: Female

DRUGS (2)
  1. TACROLIMUS 1MG [Suspect]
     Active Substance: TACROLIMUS
     Indication: LIVER TRANSPLANT
     Dosage: 3MG/2MG AM/PM PO
     Route: 048
     Dates: start: 20170803
  2. TACROLIMUS. [Suspect]
     Active Substance: TACROLIMUS
     Dosage: ?          OTHER FREQUENCY:EVERY PM;?

REACTIONS (1)
  - Hyperglycaemia [None]
